FAERS Safety Report 8335216-5 (Version None)
Quarter: 2012Q2

REPORT INFORMATION
  Report Type: 
  Country: None (occurrence: None)
  Receive Date: 20120503
  Receipt Date: 20120419
  Transmission Date: 20120825
  Serious: Yes (Other)
  Sender: FDA-Public Use
  Company Number: BE-JNJFOC-20120409026

PATIENT

DRUGS (3)
  1. DURAGESIC-100 [Suspect]
     Indication: FOETAL EXPOSURE DURING PREGNANCY
     Route: 064
  2. PERDOLAN [Suspect]
     Indication: FOETAL EXPOSURE DURING PREGNANCY
     Route: 064
  3. PERDOLAN [Suspect]
     Route: 064

REACTIONS (1)
  - TOXICITY TO VARIOUS AGENTS [None]
